FAERS Safety Report 9247340 (Version 1)
Quarter: 2013Q2

REPORT INFORMATION
  Report Type: Spontaneous
  Country: US (occurrence: US)
  Receive Date: 20130423
  Receipt Date: 20130423
  Transmission Date: 20140414
  Serious: Yes (Other)
  Sender: FDA-Public Use
  Company Number: US-JNJFOC-20130409673

PATIENT
  Sex: 0

DRUGS (1)
  1. NUCYNTA ER [Suspect]
     Indication: PAIN
     Dosage: TWICE A DAY
     Route: 048
     Dates: start: 2012, end: 2013

REACTIONS (1)
  - Psychotic disorder [Unknown]
